FAERS Safety Report 22090076 (Version 1)
Quarter: 2023Q1

REPORT INFORMATION
  Report Type: Spontaneous
  Country: US (occurrence: None)
  Receive Date: 20230313
  Receipt Date: 20230313
  Transmission Date: 20230418
  Serious: No
  Sender: FDA-Public Use
  Company Number: None

PATIENT
  Age: 36 Year
  Sex: Male

DRUGS (1)
  1. CABOTEGRAVIR [Suspect]
     Active Substance: CABOTEGRAVIR
     Indication: Product used for unknown indication
     Route: 058
     Dates: start: 20221220

REACTIONS (4)
  - Sinusitis [None]
  - Nasal dryness [None]
  - Dyspnoea [None]
  - Lip dry [None]

NARRATIVE: CASE EVENT DATE: 20230301
